FAERS Safety Report 10075541 (Version 1)
Quarter: 2014Q2

REPORT INFORMATION
  Report Type: Spontaneous
  Country: US (occurrence: US)
  Receive Date: 20140414
  Receipt Date: 20140414
  Transmission Date: 20141212
  Serious: No
  Sender: FDA-Public Use
  Company Number: US-B.I. PHARMACEUTICALS,INC./RIDGEFIELD-2014-BI-14528BP

PATIENT
  Age: 76 Year
  Sex: Female
  Weight: 60 kg

DRUGS (4)
  1. SPIRIVA [Suspect]
     Indication: EMPHYSEMA
     Dosage: 18 MCG
     Route: 055
     Dates: start: 2009
  2. SYNTHROID [Concomitant]
     Indication: HYPOTHYROIDISM
     Dosage: 100 MCG
     Route: 048
  3. LOSARTAN [Concomitant]
     Indication: HYPERTENSION
     Dosage: 25 MG
     Route: 048
  4. METOPROLOL [Concomitant]
     Indication: HYPERTENSION
     Dosage: 50 MG
     Route: 048

REACTIONS (3)
  - Dyspnoea [Not Recovered/Not Resolved]
  - Nasopharyngitis [Recovered/Resolved]
  - Product quality issue [Unknown]
